FAERS Safety Report 15403537 (Version 1)
Quarter: 2018Q3

REPORT INFORMATION
  Report Type: Report from Study
  Country: MX (occurrence: MX)
  Receive Date: 20180919
  Receipt Date: 20180919
  Transmission Date: 20181010
  Serious: Yes (Death)
  Sender: FDA-Public Use
  Company Number: PHHY2018MX094448

PATIENT
  Age: 83 Year
  Sex: Male

DRUGS (1)
  1. REVOLADE [Suspect]
     Active Substance: ELTROMBOPAG
     Indication: PROPHYLAXIS
     Dosage: 1 OT, Q8H
     Route: 048

REACTIONS (4)
  - Product use in unapproved indication [Unknown]
  - Respiratory arrest [Fatal]
  - Cardiac arrest [Fatal]
  - Red blood cell abnormality [Fatal]

NARRATIVE: CASE EVENT DATE: 201806
